FAERS Safety Report 5484707-3 (Version None)
Quarter: 2007Q4

REPORT INFORMATION
  Report Type: 
  Country: None (occurrence: None)
  Receive Date: 20071012
  Receipt Date: 20071008
  Transmission Date: 20080405
  Serious: Yes (Other)
  Sender: FDA-Public Use
  Company Number: US-PFIZER INC-2007084377

PATIENT
  Sex: Female
  Weight: 78.5 kg

DRUGS (6)
  1. DETROL LA [Suspect]
     Indication: HYPERTONIC BLADDER
     Route: 048
  2. SPIRIVA [Concomitant]
  3. XOPENEX [Concomitant]
  4. ACETYLCYSTEINE [Concomitant]
  5. TERIPARATIDE [Concomitant]
  6. OXYGEN [Concomitant]
     Indication: EMPHYSEMA

REACTIONS (2)
  - DYSPHAGIA [None]
  - DYSPNOEA [None]
